FAERS Safety Report 6734983-1 (Version None)
Quarter: 2010Q2

REPORT INFORMATION
  Report Type: 
  Country: None (occurrence: None)
  Receive Date: 20100520
  Receipt Date: 20100520
  Transmission Date: 20101027
  Serious: Yes (Life-Threatening, Hospitalization, Disabling, Other)
  Sender: FDA-Public Use
  Company Number: None

PATIENT
  Age: 50 Year
  Sex: Female
  Weight: 56.6996 kg

DRUGS (6)
  1. CYMBALTA [Suspect]
     Indication: DEPRESSION
     Dosage: 30 MG 1 DAILY PO
     Route: 048
  2. CYMBALTA [Suspect]
     Indication: GENERALISED ANXIETY DISORDER
     Dosage: 30 MG 1 DAILY PO
     Route: 048
  3. CYMBALTA [Suspect]
     Indication: NEURALGIA
     Dosage: 30 MG 1 DAILY PO
     Route: 048
  4. CYMBALTA [Suspect]
     Indication: DEPRESSION
     Dosage: 30 MG 2 DAILY PO
     Route: 048
     Dates: start: 20100204, end: 20100326
  5. CYMBALTA [Suspect]
     Indication: GENERALISED ANXIETY DISORDER
     Dosage: 30 MG 2 DAILY PO
     Route: 048
     Dates: start: 20100204, end: 20100326
  6. CYMBALTA [Suspect]
     Indication: NEURALGIA
     Dosage: 30 MG 2 DAILY PO
     Route: 048
     Dates: start: 20100204, end: 20100326

REACTIONS (16)
  - ANXIETY [None]
  - CONSTIPATION [None]
  - DRUG PRESCRIBING ERROR [None]
  - DRY MOUTH [None]
  - FATIGUE [None]
  - HEADACHE [None]
  - INCORRECT DOSE ADMINISTERED [None]
  - INSOMNIA [None]
  - INTERCEPTED MEDICATION ERROR [None]
  - IRRITABILITY [None]
  - NAUSEA [None]
  - NIGHT SWEATS [None]
  - NIGHTMARE [None]
  - PAIN [None]
  - SOCIAL AVOIDANT BEHAVIOUR [None]
  - VOMITING [None]
